FAERS Safety Report 4751070-2 (Version None)
Quarter: 2005Q3

REPORT INFORMATION
  Report Type: 
  Country: None (occurrence: None)
  Receive Date: 20050822
  Receipt Date: 20050815
  Transmission Date: 20060218
  Serious: Yes (Life-Threatening)
  Sender: FDA-Public Use
  Company Number: 05USA0173

PATIENT
  Age: 54 Year
  Sex: Female
  Weight: 63.05 kg

DRUGS (3)
  1. GLIADEL [Suspect]
     Indication: GLIOBLASTOMA MULTIFORME
     Dosage: 7 WAFERS (7.7 MG EACH)
     Dates: start: 20050616
  2. TEMODAR [Suspect]
     Indication: GLIOBLASTOMA MULTIFORME
     Dosage: 320 MG QD
     Dates: start: 20050620, end: 20050624
  3. AVITENE (COLLAGEN) [Concomitant]

REACTIONS (2)
  - NEUTROPENIA [None]
  - THROMBOCYTOPENIA [None]
